FAERS Safety Report 9369534 (Version 1)
Quarter: 2013Q2

REPORT INFORMATION
  Report Type: Spontaneous
  Country: US (occurrence: US)
  Receive Date: 20130626
  Receipt Date: 20130626
  Transmission Date: 20140414
  Serious: No
  Sender: FDA-Public Use
  Company Number: US-PFIZER INC-2013187022

PATIENT
  Age: 62 Year
  Sex: Male
  Weight: 155 kg

DRUGS (2)
  1. CLINDAMYCIN HCL [Suspect]
     Indication: RASH
     Dosage: UNK
  2. CORTISONE-10 [Suspect]
     Indication: RASH
     Dosage: UNK

REACTIONS (1)
  - Drug ineffective [Unknown]
